FAERS Safety Report 18349036 (Version 1)
Quarter: 2020Q4

REPORT INFORMATION
  Report Type: Spontaneous
  Country: CA (occurrence: CA)
  Receive Date: 20201006
  Receipt Date: 20201006
  Transmission Date: 20210114
  Serious: Yes (Other)
  Sender: FDA-Public Use
  Company Number: CA-GLAXOSMITHKLINE-CA2018GSK189276

PATIENT
  Age: 54 Year
  Sex: Male

DRUGS (14)
  1. BUPROPION HYDROCHLORIDE. [Interacting]
     Active Substance: BUPROPION HYDROCHLORIDE
     Indication: BIPOLAR DISORDER
     Dosage: UNK
  2. KALETRA [Interacting]
     Active Substance: LOPINAVIR\RITONAVIR
     Indication: HIV INFECTION
     Dosage: UNK
  3. SUSTIVA [Interacting]
     Active Substance: EFAVIRENZ
     Indication: HIV INFECTION
     Dosage: 400 MG, BID
     Route: 048
  4. SERTRALINE HYDROCHLORIDE. [Interacting]
     Active Substance: SERTRALINE HYDROCHLORIDE
     Indication: BIPOLAR DISORDER
     Dosage: UNK
     Route: 048
  5. LAMIVUDINE. [Suspect]
     Active Substance: LAMIVUDINE
     Indication: HIV INFECTION
     Dosage: UNK
  6. RALTEGRAVIR POTASSIUM [Interacting]
     Active Substance: RALTEGRAVIR POTASSIUM
     Indication: HIV INFECTION
     Dosage: 400 MG, BID
     Route: 048
  7. ATAZANAVIR SULFATE. [Interacting]
     Active Substance: ATAZANAVIR SULFATE
     Indication: HIV INFECTION
     Dosage: UNK
     Route: 048
  8. EFAVIRENZ. [Interacting]
     Active Substance: EFAVIRENZ
     Indication: HIV INFECTION
     Dosage: UNK
     Route: 048
  9. QUETIAPINE FUMARATE. [Interacting]
     Active Substance: QUETIAPINE FUMARATE
     Indication: BIPOLAR DISORDER
     Dosage: UNK
     Route: 048
  10. CLONAZEPAM. [Interacting]
     Active Substance: CLONAZEPAM
     Indication: BIPOLAR DISORDER
     Dosage: UNK
     Route: 048
  11. VALPROIC ACID. [Interacting]
     Active Substance: VALPROIC ACID
     Indication: PRODUCT USED FOR UNKNOWN INDICATION
     Dosage: UNK
  12. ZOPICLONE [Interacting]
     Active Substance: ZOPICLONE
     Indication: BIPOLAR DISORDER
     Dosage: UNK
     Route: 048
  13. LOPINAVIR+RITONAVIR [Suspect]
     Active Substance: LOPINAVIR\RITONAVIR
     Indication: HIV INFECTION
     Dosage: UNK
  14. ENFUVIRTIDE. [Concomitant]
     Active Substance: ENFUVIRTIDE
     Indication: HIV INFECTION
     Dosage: UNK
     Route: 048

REACTIONS (3)
  - Depression [Recovered/Resolved]
  - Drug interaction [Recovered/Resolved]
  - Loss of personal independence in daily activities [Recovered/Resolved]
